FAERS Safety Report 19800797 (Version 10)
Quarter: 2023Q4

REPORT INFORMATION
  Report Type: Spontaneous
  Country: JP (occurrence: JP)
  Receive Date: 20210908
  Receipt Date: 20231124
  Transmission Date: 20240110
  Serious: Yes (Other)
  Sender: FDA-Public Use
  Company Number: JP-ASTELLAS-2021JP017269

PATIENT
  Age: 8 Decade
  Sex: Male
  Weight: 50.2 kg

DRUGS (7)
  1. XOSPATA [Suspect]
     Active Substance: GILTERITINIB
     Indication: Acute myeloid leukaemia refractory
     Route: 048
     Dates: start: 20210823, end: 20210902
  2. XOSPATA [Suspect]
     Active Substance: GILTERITINIB
     Route: 048
     Dates: start: 20210903, end: 20210912
  3. CYTARABINE [Suspect]
     Active Substance: CYTARABINE
     Indication: Acute myeloid leukaemia refractory
     Dosage: UNK UNK, UNKNOWN FREQ.
     Route: 065
     Dates: start: 20210808
  4. ACLARUBICIN HYDROCHLORIDE [Suspect]
     Active Substance: ACLARUBICIN HYDROCHLORIDE
     Indication: Acute myeloid leukaemia refractory
     Dosage: UNK UNK, UNKNOWN FREQ.
     Route: 065
     Dates: start: 20210808
  5. ZOLPIDEM TARTRATE [Suspect]
     Active Substance: ZOLPIDEM TARTRATE
     Indication: Product used for unknown indication
     Route: 065
     Dates: end: 20210912
  6. GLYCOSAMINOGLYCANS [Concomitant]
     Active Substance: GLYCOSAMINOGLYCANS
     Indication: Rash
     Dosage: UNK UNK, UNKNOWN FREQ.
     Route: 065
     Dates: start: 20210904
  7. BETAMETHASONE DIPROPIONATE [Concomitant]
     Active Substance: BETAMETHASONE DIPROPIONATE
     Indication: Rash
     Dosage: UNK UNK, UNKNOWN FREQ.
     Route: 065
     Dates: start: 20210904

REACTIONS (4)
  - Cytopenia [Recovering/Resolving]
  - Rash [Recovering/Resolving]
  - Pancreatic enzymes increased [Recovered/Resolved]
  - Pancreatic cyst [Unknown]

NARRATIVE: CASE EVENT DATE: 20210830
